FAERS Safety Report 24050478 (Version 1)
Quarter: 2024Q3

REPORT INFORMATION
  Report Type: Report from Study
  Country: AU (occurrence: None)
  Receive Date: 20240704
  Receipt Date: 20240704
  Transmission Date: 20241017
  Serious: Yes (Other)
  Sender: ASTRAZENECA
  Company Number: 2024A149318

PATIENT
  Sex: Male

DRUGS (2)
  1. BRILINTA [Suspect]
     Active Substance: TICAGRELOR
     Indication: Brain stent insertion
     Route: 048
     Dates: end: 20240625
  2. BRILINTA [Suspect]
     Active Substance: TICAGRELOR
     Indication: Intracranial aneurysm
     Route: 048
     Dates: end: 20240625

REACTIONS (4)
  - White matter lesion [Unknown]
  - Scratch [Recovering/Resolving]
  - Urticaria [Recovering/Resolving]
  - Skin haemorrhage [Recovering/Resolving]
